FAERS Safety Report 6145150-7 (Version None)
Quarter: 2009Q2

REPORT INFORMATION
  Report Type: 
  Country: None (occurrence: None)
  Receive Date: 20090406
  Receipt Date: 20090326
  Transmission Date: 20091009
  Serious: Yes (Hospitalization, Other)
  Sender: FDA-Public Use
  Company Number: ID-ELI_LILLY_AND_COMPANY-ID200903002898

PATIENT
  Sex: Female
  Weight: 75 kg

DRUGS (7)
  1. LISPRO [Suspect]
     Indication: TYPE 2 DIABETES MELLITUS
     Dosage: 30 IU, EACH MORNING
     Route: 058
     Dates: start: 20090302, end: 20090311
  2. LISPRO [Suspect]
     Dosage: 24 IU, EACH EVENING
     Route: 058
     Dates: start: 20090302, end: 20090311
  3. INSULIN, HUMAN [Suspect]
     Indication: DIABETES MELLITUS
     Dates: start: 20090311, end: 20090301
  4. VALSARTAN [Concomitant]
     Indication: HYPERTENSION
     Dosage: 80 MG, UNK
     Dates: start: 20080704
  5. AMLODIPINE BESYLATE [Concomitant]
     Dosage: 5 MG, UNK
     Dates: start: 20080220
  6. ACETYLSALICYLATE CALCIUM [Concomitant]
     Dosage: 80 MG, UNK
     Dates: start: 20071108
  7. SITAGLIPTIN [Concomitant]
     Indication: TYPE 2 DIABETES MELLITUS
     Dosage: 25 MG, UNK
     Dates: start: 20090312

REACTIONS (4)
  - CARDIOMEGALY [None]
  - HYPERSENSITIVITY [None]
  - OEDEMA [None]
  - PULMONARY OEDEMA [None]
